FAERS Safety Report 7202120-5 (Version None)
Quarter: 2010Q4

REPORT INFORMATION
  Report Type: 
  Country: None (occurrence: None)
  Receive Date: 20101229
  Receipt Date: 20101215
  Transmission Date: 20110411
  Serious: Yes (Hospitalization)
  Sender: FDA-Public Use
  Company Number: US-CELGENEUS-163-21880-10112659

PATIENT
  Sex: Male
  Weight: 61.7 kg

DRUGS (7)
  1. REVLIMID [Suspect]
     Indication: AMYLOIDOSIS
     Route: 048
     Dates: start: 20100417
  2. REVLIMID [Suspect]
     Route: 048
     Dates: start: 20100620, end: 20100711
  3. MELPHALAN [Suspect]
     Indication: AMYLOIDOSIS
     Route: 048
     Dates: start: 20100417, end: 20100715
  4. DEXAMETHASONE [Suspect]
     Indication: AMYLOIDOSIS
     Route: 048
     Dates: start: 20100417, end: 20100715
  5. ASPIRIN [Concomitant]
     Route: 065
  6. LASIX [Concomitant]
     Route: 065
  7. NEURONTIN [Concomitant]
     Route: 065

REACTIONS (2)
  - PRESYNCOPE [None]
  - RENAL FAILURE ACUTE [None]
